FAERS Safety Report 5300970-3 (Version None)
Quarter: 2007Q1

REPORT INFORMATION
  Report Type: 
  Country: None (occurrence: None)
  Receive Date: 20070208
  Receipt Date: 20060113
  Transmission Date: 20070707
  Serious: Yes (Other)
  Sender: FDA-Public Use
  Company Number: PROG00206000224

PATIENT
  Sex: Female

DRUGS (4)
  1. PROMETRIUM [Suspect]
     Indication: HORMONE REPLACEMENT THERAPY
     Dosage: DAILY ORAL DAILY DOSE
     Route: 048
  2. PREMPHASE (PREMARIN;CYCRIN 14/14) [Suspect]
     Indication: HORMONE REPLACEMENT THERAPY
     Dosage: DAILY DAILY DOSE
  3. PROVERA [Suspect]
     Indication: HORMONE REPLACEMENT THERAPY
     Dosage: DAILY ORAL DAILY DOSE
  4. CENESTIN [Suspect]
     Indication: HORMONE REPLACEMENT THERAPY
     Dosage: DAILY  DAILY DOSE

REACTIONS (1)
  - BREAST CANCER [None]
